FAERS Safety Report 16165465 (Version 5)
Quarter: 2019Q2

REPORT INFORMATION
  Report Type: Spontaneous
  Country: JP (occurrence: JP)
  Receive Date: 20190405
  Receipt Date: 20190521
  Transmission Date: 20190711
  Serious: Yes (Hospitalization, Other)
  Sender: FDA-Public Use
  Company Number: JP-009507513-1903JPN003749J

PATIENT
  Age: 7 Decade
  Sex: Male
  Weight: 45 kg

DRUGS (7)
  1. PANVITAN [Concomitant]
     Dosage: 1G
     Route: 065
  2. ALIMTA [Concomitant]
     Active Substance: PEMETREXED DISODIUM
     Indication: NON-SMALL CELL LUNG CANCER
     Dosage: 715 MILLIGRAM, QD
     Route: 042
     Dates: start: 20190320, end: 20190320
  3. CARBOPLATIN. [Concomitant]
     Active Substance: CARBOPLATIN
     Dosage: UNK
     Route: 065
  4. LOXONIN [Suspect]
     Active Substance: LOXOPROFEN SODIUM
     Indication: PALLIATIVE CARE
     Dosage: UNK
     Route: 048
     Dates: start: 20190306, end: 20190313
  5. CISPLATIN. [Suspect]
     Active Substance: CISPLATIN
     Indication: NON-SMALL CELL LUNG CANCER
     Dosage: 107 MILLIGRAM, QD
     Route: 041
     Dates: start: 20190320, end: 20190320
  6. NEXIUM [Concomitant]
     Active Substance: ESOMEPRAZOLE MAGNESIUM
     Dosage: 20MG,1 DOSAGE FORM
     Route: 065
  7. KEYTRUDA [Suspect]
     Active Substance: PEMBROLIZUMAB
     Indication: NON-SMALL CELL LUNG CANCER
     Dosage: 200 MILLIGRAM, Q3W
     Route: 041
     Dates: start: 20190320, end: 20190320

REACTIONS (11)
  - Eczema [Recovering/Resolving]
  - Constipation [Unknown]
  - Alanine aminotransferase increased [Unknown]
  - Pyrexia [Unknown]
  - Decreased appetite [Recovered/Resolved]
  - Hepatic function abnormal [Not Recovered/Not Resolved]
  - Dermatitis acneiform [Not Recovered/Not Resolved]
  - Acute kidney injury [Recovering/Resolving]
  - Aspartate aminotransferase increased [Unknown]
  - Hordeolum [Unknown]
  - Malaise [Unknown]

NARRATIVE: CASE EVENT DATE: 2019
